FAERS Safety Report 18813487 (Version 1)
Quarter: 2021Q1

REPORT INFORMATION
  Report Type: Spontaneous
  Country: US (occurrence: US)
  Receive Date: 20210201
  Receipt Date: 20210201
  Transmission Date: 20210419
  Serious: Yes (Life-Threatening, Hospitalization, Other)
  Sender: FDA-Public Use
  Company Number: US-TORRENT-00010690

PATIENT
  Age: 55 Year
  Sex: Male

DRUGS (7)
  1. HYDROXYZINE [Interacting]
     Active Substance: HYDROXYZINE HYDROCHLORIDE
     Indication: SUICIDAL IDEATION
     Dosage: UNKNOWN
  2. QUETIAPINE. [Interacting]
     Active Substance: QUETIAPINE
     Indication: SUICIDAL IDEATION
     Dosage: UNKNOWN
  3. BENZATROPINE [Interacting]
     Active Substance: BENZTROPINE
     Indication: SUICIDAL IDEATION
     Dosage: UNKNOWN
  4. TACROLIMUS. [Interacting]
     Active Substance: TACROLIMUS
     Indication: IMMUNOSUPPRESSANT DRUG THERAPY
     Dosage: UNKNOWN
  5. HALOPERIDOL. [Interacting]
     Active Substance: HALOPERIDOL
     Indication: SUICIDAL IDEATION
     Dosage: UNKNOWN
  6. FLUOXETINE [Interacting]
     Active Substance: FLUOXETINE HYDROCHLORIDE
     Indication: SUICIDAL IDEATION
  7. CITALOPRAM [Suspect]
     Active Substance: CITALOPRAM HYDROBROMIDE
     Indication: SUICIDAL IDEATION
     Dosage: UNKNOWN

REACTIONS (6)
  - Nephropathy toxic [Recovering/Resolving]
  - Neurotoxicity [Recovered/Resolved]
  - Acute kidney injury [Recovering/Resolving]
  - Drug interaction [Recovered/Resolved]
  - Drug level increased [Recovered/Resolved]
  - Tremor [Recovered/Resolved]
